FAERS Safety Report 10084122 (Version 1)
Quarter: 2014Q2

REPORT INFORMATION
  Report Type: Spontaneous
  Country: BR (occurrence: BR)
  Receive Date: 20140417
  Receipt Date: 20140417
  Transmission Date: 20141212
  Serious: Yes (Hospitalization, Other)
  Sender: FDA-Public Use
  Company Number: BR-NOVOPROD-406233

PATIENT
  Age: 29 Year
  Sex: Male

DRUGS (4)
  1. VICTOZA [Suspect]
     Indication: PRODUCT USED FOR UNKNOWN INDICATION
     Dosage: 1.2 MG, QD
     Route: 065
     Dates: start: 2013
  2. GLIFAGE [Concomitant]
     Dosage: 1 TAB
     Route: 065
     Dates: start: 2013
  3. ROSUVASTATINE [Concomitant]
     Dosage: 1 TAB
     Route: 065
     Dates: start: 2013
  4. SIBUTRAMINA [Concomitant]
     Dosage: UNK
     Route: 065
     Dates: start: 20140313

REACTIONS (9)
  - Hepatic steatosis [Unknown]
  - Neutropenia [Unknown]
  - Leukocytosis [Unknown]
  - Abdominal pain [Unknown]
  - Vomiting [Unknown]
  - Hepatic cyst [Unknown]
  - Renal cyst [Unknown]
  - Gastrooesophageal reflux disease [Unknown]
  - Nausea [Unknown]
